FAERS Safety Report 5890015-9 (Version None)
Quarter: 2008Q3

REPORT INFORMATION
  Report Type: 
  Country: None (occurrence: None)
  Receive Date: 20080919
  Receipt Date: 20080909
  Transmission Date: 20090109
  Serious: Yes (Other)
  Sender: FDA-Public Use
  Company Number: US-JNJCH-2008023693

PATIENT
  Age: 88 Year
  Sex: Male
  Weight: 61.2 kg

DRUGS (1)
  1. BENGAY GREASELESS [Suspect]
     Indication: DRUG USE FOR UNKNOWN INDICATION
     Dosage: TEXT:NORMAL AMOUNT ONCE
     Route: 061

REACTIONS (2)
  - DYSSTASIA [None]
  - SENSORY LOSS [None]
